FAERS Safety Report 18480073 (Version 2)
Quarter: 2020Q4

REPORT INFORMATION
  Report Type: Spontaneous
  Country: DE (occurrence: DE)
  Receive Date: 20201109
  Receipt Date: 20201214
  Transmission Date: 20210114
  Serious: Yes (Death, Other)
  Sender: FDA-Public Use
  Company Number: DE-MICRO LABS LIMITED-ML2020-03312

PATIENT
  Age: 31 Year
  Sex: Female

DRUGS (20)
  1. MDPBP (3^,4^-METHYLENEDIOXY-ALPHA-PYRROLIDINOBUTYROPHENONE) [Suspect]
     Active Substance: MDPBP
  2. DIAZEPAM. [Suspect]
     Active Substance: DIAZEPAM
  3. METHADONE [Suspect]
     Active Substance: METHADONE HYDROCHLORIDE
  4. CHLOROTHEOPHYLLINE [Suspect]
     Active Substance: CHLORTHEOPHYLLINE
  5. BENZOYLECGONINE [Suspect]
     Active Substance: BENZOYLECGONINE
  6. CODEINE [Suspect]
     Active Substance: CODEINE
  7. CAFFEINE CITRATE. [Suspect]
     Active Substance: CAFFEINE CITRATE
  8. AMPHETAMINE [Suspect]
     Active Substance: AMPHETAMINE
  9. MORPHINE [Suspect]
     Active Substance: MORPHINE
  10. THC (TETRAHYDROCANNABINOL) (THC-COOH) [Suspect]
     Active Substance: 11-NOR-9-CARBOXY-.DELTA.9-TETRAHYDROCANNABINOL
  11. COCAINE [Suspect]
     Active Substance: COCAINE
  12. TEMAZEPAM. [Suspect]
     Active Substance: TEMAZEPAM
  13. TETRAZEPAM [Suspect]
     Active Substance: TETRAZEPAM
  14. TETRAMISOLE [Suspect]
     Active Substance: TETRAMISOLE
  15. DIPHENYLMETHOXYACETIC ACID [Suspect]
     Active Substance: BENZHYDRYLOXYACETIC ACID
  16. 6-MONOACETYLMORPHINE [Suspect]
     Active Substance: 6-ACETYLMORPHINE
  17. OPIPRAMOL [Suspect]
     Active Substance: OPIPRAMOL
  18. DIPHENHYDRAMINE HYDROCHLORIDE. [Suspect]
     Active Substance: DIPHENHYDRAMINE HYDROCHLORIDE
  19. ETORICOXIB. [Suspect]
     Active Substance: ETORICOXIB
  20. NORDAZEPAM [Suspect]
     Active Substance: NORDAZEPAM

REACTIONS (4)
  - Toxicity to various agents [Fatal]
  - Suspected suicide [Fatal]
  - Product use issue [Fatal]
  - Drug abuse [Unknown]

NARRATIVE: CASE EVENT DATE: 2013
